FAERS Safety Report 5339262-5 (Version None)
Quarter: 2007Q2

REPORT INFORMATION
  Report Type: 
  Country: None (occurrence: None)
  Receive Date: 20070525
  Receipt Date: 20070510
  Transmission Date: 20071010
  Serious: Yes (Life-Threatening)
  Sender: FDA-Public Use
  Company Number: 2007EN000040

PATIENT
  Age: 60 Year
  Sex: Female

DRUGS (6)
  1. ABELCET [Suspect]
     Indication: DRUG USE FOR UNKNOWN INDICATION
     Dosage: 100 MG;QD;IV
     Route: 042
     Dates: start: 20061128, end: 20061128
  2. AMIKACIN [Concomitant]
  3. MEROPENEM [Concomitant]
  4. NORADRENALINE [Concomitant]
  5. PANTOPRAZOLE SODIUM [Concomitant]
  6. OCTREOTIDE ACETATE [Concomitant]

REACTIONS (5)
  - CHILLS [None]
  - HYPERTENSION [None]
  - PYREXIA [None]
  - RASH [None]
  - TACHYCARDIA [None]
